FAERS Safety Report 10537816 (Version 2)
Quarter: 2014Q4

REPORT INFORMATION
  Report Type: Spontaneous
  Country: MX (occurrence: MX)
  Receive Date: 20141023
  Receipt Date: 20141023
  Transmission Date: 20150529
  Serious: Yes (Other)
  Sender: FDA-Public Use
  Company Number: MX-ELI_LILLY_AND_COMPANY-MX201408005518

PATIENT
  Sex: Female
  Weight: 100 kg

DRUGS (5)
  1. HUMALOG [Suspect]
     Active Substance: INSULIN LISPRO
     Dosage: UNK UNK, BID
     Route: 065
     Dates: start: 201407, end: 201410
  2. ACARBOSE. [Concomitant]
     Active Substance: ACARBOSE
  3. INSULIN [Concomitant]
     Active Substance: INSULIN NOS
  4. HUMALOG [Suspect]
     Active Substance: INSULIN LISPRO
     Indication: TYPE 2 DIABETES MELLITUS
     Dosage: UNK UNK, BID
     Route: 065
     Dates: start: 201308, end: 201407
  5. HUMALOG [Suspect]
     Active Substance: INSULIN LISPRO
     Dosage: UNK, BID
     Route: 065
     Dates: start: 201410

REACTIONS (2)
  - Weight increased [Not Recovered/Not Resolved]
  - Drug dose omission [Unknown]
